FAERS Safety Report 8315083-6 (Version None)
Quarter: 2012Q2

REPORT INFORMATION
  Report Type: 
  Country: None (occurrence: None)
  Receive Date: 20120426
  Receipt Date: 20120417
  Transmission Date: 20120825
  Serious: Yes (Other)
  Sender: FDA-Public Use
  Company Number: US-ABBOTT-12P-163-0927881-00

PATIENT
  Sex: Female
  Weight: 55.388 kg

DRUGS (5)
  1. VICODIN [Concomitant]
     Indication: PAIN
  2. CALCIUM [Concomitant]
     Indication: PRODUCT USED FOR UNKNOWN INDICATION
  3. PROZAC [Concomitant]
     Indication: ANXIETY
  4. LUPRON DEPOT [Suspect]
     Indication: ENDOMETRIOSIS
     Route: 050
  5. MULTI-VITAMINS [Concomitant]
     Indication: PRODUCT USED FOR UNKNOWN INDICATION

REACTIONS (4)
  - WHITE BLOOD CELL COUNT INCREASED [None]
  - URINARY BLADDER HAEMORRHAGE [None]
  - CYSTITIS [None]
  - ABDOMINAL PAIN LOWER [None]
